FAERS Safety Report 17546039 (Version 1)
Quarter: 2020Q1

REPORT INFORMATION
  Report Type: Spontaneous
  Country: US (occurrence: US)
  Receive Date: 20200316
  Receipt Date: 20200316
  Transmission Date: 20200409
  Serious: Yes (Life-Threatening, Hospitalization)
  Sender: FDA-Public Use
  Company Number: None

PATIENT
  Age: 65 Year
  Sex: Female
  Weight: 108.3 kg

DRUGS (3)
  1. VANCOMYCIN [Suspect]
     Active Substance: VANCOMYCIN
     Indication: LOWER RESPIRATORY TRACT INFECTION
     Dosage: ?          OTHER FREQUENCY:1 GRAM X 4 TOTAL;?
     Route: 042
     Dates: start: 20200229, end: 20200301
  2. VANCOMYCIN [Concomitant]
     Active Substance: VANCOMYCIN
     Dates: start: 20200229, end: 20200229
  3. AZITHROMYCIN ANHYDROUS. [Concomitant]
     Active Substance: AZITHROMYCIN ANHYDROUS
     Dates: start: 20200229, end: 20200302

REACTIONS (2)
  - Drug hypersensitivity [None]
  - Acute generalised exanthematous pustulosis [None]

NARRATIVE: CASE EVENT DATE: 20200229
